FAERS Safety Report 13335202 (Version 1)
Quarter: 2017Q1

REPORT INFORMATION
  Report Type: Report from Study
  Country: None (occurrence: US)
  Receive Date: 20170315
  Receipt Date: 20170315
  Transmission Date: 20170428
  Serious: Yes (Hospitalization)
  Sender: FDA-Public Use
  Company Number: US-ABBVIE-17K-163-1834852-00

PATIENT
  Age: 59 Year
  Sex: Female
  Weight: 113.5 kg

DRUGS (2)
  1. MOBIC [Concomitant]
     Active Substance: MELOXICAM
     Indication: PAIN
  2. HUMIRA [Suspect]
     Active Substance: ADALIMUMAB
     Indication: HIDRADENITIS
     Route: 058

REACTIONS (8)
  - Psychotic behaviour [Recovering/Resolving]
  - Hospitalisation [Recovered/Resolved]
  - Dermatitis [Unknown]
  - Chest pain [Recovered/Resolved]
  - Bipolar disorder [Not Recovered/Not Resolved]
  - Wound [Unknown]
  - Wound complication [Unknown]
  - Abdominal fat apron [Not Recovered/Not Resolved]

NARRATIVE: CASE EVENT DATE: 20161229
